FAERS Safety Report 6444040-X (Version None)
Quarter: 2009Q4

REPORT INFORMATION
  Report Type: 
  Country: None (occurrence: None)
  Receive Date: 20091116
  Receipt Date: 20091116
  Transmission Date: 20100525
  Serious: Yes (Hospitalization)
  Sender: FDA-Public Use
  Company Number: None

PATIENT
  Age: 37 Year
  Sex: Female
  Weight: 72.5755 kg

DRUGS (2)
  1. DICYCLOMINE [Suspect]
     Indication: ABDOMINAL PAIN UPPER
     Dosage: 20 MG. TABLET ONE TIME ONLY PO
     Route: 048
     Dates: start: 20091112, end: 20091112
  2. DICYCLOMINE [Suspect]
     Indication: DIARRHOEA
     Dosage: 20 MG. TABLET ONE TIME ONLY PO
     Route: 048
     Dates: start: 20091112, end: 20091112

REACTIONS (1)
  - DRUG HYPERSENSITIVITY [None]
